FAERS Safety Report 8349265 (Version 2)
Quarter: 2013Q3

REPORT INFORMATION
  Report Type: Report from Study
  Country: MX (occurrence: MX)
  Receive Date: 20120123
  Receipt Date: 20130708
  Transmission Date: 20140515
  Serious: Yes (Other)
  Sender: FDA-Public Use
  Company Number: PHHY2012MX004953

PATIENT
  Age: 62 Year
  Sex: Female

DRUGS (5)
  1. ACLASTA [Suspect]
     Indication: OSTEOPOROSIS
     Dosage: 5 MG, YEARLY
     Route: 042
     Dates: start: 201101
  2. ARALEN [Concomitant]
     Indication: ARTHRITIS
     Dosage: 1 UKN, QW3
  3. METHOTREXATE [Concomitant]
     Indication: ARTHRITIS
     Dosage: 1 UKN, QW5
  4. AMLODIPINE [Concomitant]
     Indication: HYPERTENSION
     Dosage: 1 UKN, QD
  5. LOSARTAN [Concomitant]
     Indication: HYPERTENSION
     Dosage: 1 UKN, BID

REACTIONS (3)
  - Pneumonia [Unknown]
  - Cough [Unknown]
  - Pyrexia [Recovered/Resolved]
